FAERS Safety Report 9972750 (Version 1)
Quarter: 2014Q1

REPORT INFORMATION
  Report Type: Spontaneous
  Country: US (occurrence: US)
  Receive Date: 20140306
  Receipt Date: 20140306
  Transmission Date: 20141002
  Serious: No
  Sender: FDA-Public Use
  Company Number: US-PFIZER INC-2014058822

PATIENT
  Sex: Female

DRUGS (2)
  1. ADVIL [Suspect]
     Indication: MALAISE
     Dosage: UNK
  2. ROBITUSSIN [Suspect]
     Dosage: UNK

REACTIONS (2)
  - Drug ineffective for unapproved indication [Unknown]
  - Malaise [Unknown]
